FAERS Safety Report 24729302 (Version 1)
Quarter: 2024Q4

REPORT INFORMATION
  Report Type: Report from Study
  Country: MX (occurrence: MX)
  Receive Date: 20241213
  Receipt Date: 20241213
  Transmission Date: 20250115
  Serious: Yes (Hospitalization)
  Sender: ULTRAGENYX PHARMACEUTICAL
  Company Number: MX-ULTRAGENYX PHARMACEUTICAL INC.-MX-UGX-24-02350

PATIENT
  Age: 6 Year
  Sex: Male
  Weight: 17.9 kg

DRUGS (1)
  1. DOJOLVI [Suspect]
     Active Substance: TRIHEPTANOIN
     Indication: Fatty acid oxidation disorder
     Dosage: 10 MILLILITER, QID
     Route: 048
     Dates: start: 20240620

REACTIONS (1)
  - Tenoplasty [Not Recovered/Not Resolved]

NARRATIVE: CASE EVENT DATE: 20241204
